FAERS Safety Report 10535006 (Version 1)
Quarter: 2014Q4

REPORT INFORMATION
  Report Type: Spontaneous
  Country: AT (occurrence: AT)
  Receive Date: 20141022
  Receipt Date: 20141022
  Transmission Date: 20150529
  Serious: Yes (Other)
  Sender: FDA-Public Use
  Company Number: AT-PFIZER INC-2014288356

PATIENT
  Age: 70 Year
  Sex: Male
  Weight: 91.2 kg

DRUGS (53)
  1. NORVASC [Suspect]
     Active Substance: AMLODIPINE BESYLATE
     Dosage: 7.5 MG, UNK
     Dates: start: 20140324, end: 20140423
  2. CIPRALEX [Suspect]
     Active Substance: ESCITALOPRAM OXALATE
     Dosage: 15 MG, UNK
     Dates: start: 201401, end: 20140304
  3. TEMESTA [Concomitant]
     Active Substance: LORAZEPAM
     Dosage: 1 MG, UNK
     Dates: start: 20140313, end: 20140315
  4. FINASTERIDE. [Concomitant]
     Active Substance: FINASTERIDE
     Dosage: 5 MG, UNK
     Dates: start: 201401
  5. LYRICA [Concomitant]
     Active Substance: PREGABALIN
     Dosage: 300 MG, UNK
     Dates: start: 20140328, end: 20140408
  6. ZOLDEM [Concomitant]
     Active Substance: ZOLPIDEM TARTRATE
     Dosage: 20 MG, UNK
     Dates: start: 20140224, end: 20140413
  7. ZOLDEM [Concomitant]
     Active Substance: ZOLPIDEM TARTRATE
     Dosage: 15 MG, UNK
     Dates: start: 20140414, end: 20140414
  8. SIRDALUD [Concomitant]
     Active Substance: TIZANIDINE
     Dosage: 2 MG, UNK
     Dates: start: 20140413, end: 20140414
  9. TEMESTA [Concomitant]
     Active Substance: LORAZEPAM
     Dosage: 1 MG, UNK
     Dates: start: 201401, end: 20140217
  10. ALNA RETARD [Concomitant]
     Active Substance: TAMSULOSIN HYDROCHLORIDE
     Dosage: 0.8 MG, UNK
     Dates: start: 20140411
  11. VITAMINS WITH MINERALS [Concomitant]
     Active Substance: MINERALS\VITAMINS
     Dosage: 1 DF, UNK
     Dates: start: 201401, end: 20140214
  12. MIRTABENE [Concomitant]
     Active Substance: MIRTAZAPINE
     Dosage: 15 MG, UNK
     Dates: start: 20140409, end: 20140409
  13. BRETARIS GENUAIR [Concomitant]
     Dosage: 1 DF, 1X/DAY
     Dates: start: 201401, end: 20140323
  14. TENORMIN [Concomitant]
     Active Substance: ATENOLOL
     Dosage: 50 MG, UNK
     Dates: start: 201401, end: 20140423
  15. OLEOVIT-D3 [Concomitant]
     Dosage: 50 GTT, WEEKLY
     Dates: start: 201401
  16. TRITACE [Concomitant]
     Active Substance: RAMIPRIL
     Dosage: 10 MG, UNK
     Dates: start: 20140227, end: 20140429
  17. CIRCADIN [Concomitant]
     Active Substance: MELATONIN
     Dosage: 2 MG, UNK
     Dates: start: 20140217, end: 20140309
  18. ATORVALAN [Concomitant]
     Dosage: 40 MG, UNK
     Dates: start: 20140317
  19. TRITAZIDE [Concomitant]
     Active Substance: HYDROCHLOROTHIAZIDE\RAMIPRIL
     Dosage: 5 MG, UNK
     Dates: start: 20140430
  20. CIPRALEX [Suspect]
     Active Substance: ESCITALOPRAM OXALATE
     Dosage: 20 MG, UNK
     Dates: start: 20140305, end: 20140407
  21. SORTIS [Concomitant]
     Active Substance: ATORVASTATIN
     Dosage: 40 MG, UNK
     Dates: start: 201401, end: 20140316
  22. LYRICA [Concomitant]
     Active Substance: PREGABALIN
     Dosage: 100 MG, UNK
     Dates: start: 20140324, end: 20140324
  23. NORVASC [Suspect]
     Active Substance: AMLODIPINE BESYLATE
     Dosage: 10 MG, UNK
     Dates: start: 20140304, end: 20140316
  24. NORVASC [Suspect]
     Active Substance: AMLODIPINE BESYLATE
     Dosage: 5 MG, UNK
     Dates: start: 20140318, end: 20140323
  25. DOMINAL FORTE [Suspect]
     Active Substance: PROTHIPENDYL HYDROCHLORIDE
     Dosage: 80 MG, UNK
     Dates: start: 201401, end: 20140219
  26. CIPRALEX [Suspect]
     Active Substance: ESCITALOPRAM OXALATE
     Dosage: 30 MG, UNK
     Dates: start: 20140408
  27. TEMESTA [Concomitant]
     Active Substance: LORAZEPAM
     Dosage: 0.5 MG, UNK
     Dates: start: 20140325, end: 20140325
  28. LYRICA [Concomitant]
     Active Substance: PREGABALIN
     Dosage: 200 MG, UNK
     Dates: start: 20140325, end: 20140327
  29. LYRICA [Concomitant]
     Active Substance: PREGABALIN
     Dosage: 75 MG, UNK
     Dates: start: 20140409, end: 20140409
  30. ALNA RETARD [Concomitant]
     Active Substance: TAMSULOSIN HYDROCHLORIDE
     Dosage: 0.4 MG, UNK
     Dates: start: 20140214, end: 20140410
  31. MIRTABENE [Concomitant]
     Active Substance: MIRTAZAPINE
     Dosage: 45 MG, UNK
     Dates: start: 201401, end: 20140306
  32. MIRTABENE [Concomitant]
     Active Substance: MIRTAZAPINE
     Dosage: 30 MG, UNK
     Dates: start: 20140407, end: 20140408
  33. TRITACE [Concomitant]
     Active Substance: RAMIPRIL
     Dosage: 5 MG, UNK
     Dates: start: 20140217, end: 20140226
  34. SIRDALUD [Concomitant]
     Active Substance: TIZANIDINE
     Dosage: 4 MG, UNK
     Dates: start: 20140321, end: 20140412
  35. TEMESTA [Concomitant]
     Active Substance: LORAZEPAM
     Dosage: 0.5 MG, UNK
     Dates: start: 20140316, end: 20140316
  36. MIRTABENE [Concomitant]
     Active Substance: MIRTAZAPINE
     Dosage: 60 MG, UNK
     Dates: start: 20140307, end: 20140406
  37. TRITACE [Concomitant]
     Active Substance: RAMIPRIL
     Dosage: 5 MG, UNK
     Dates: start: 20140430, end: 20140430
  38. DOMINAL FORTE [Suspect]
     Active Substance: PROTHIPENDYL HYDROCHLORIDE
     Dosage: 160 MG, UNK
     Dates: start: 20140220, end: 20140417
  39. ZOLDEM [Concomitant]
     Active Substance: ZOLPIDEM TARTRATE
     Dosage: 10 MG, UNK
     Dates: start: 201401, end: 20140223
  40. ZOLDEM [Concomitant]
     Active Substance: ZOLPIDEM TARTRATE
     Dosage: 10 MG, UNK
     Dates: start: 20140415, end: 20140416
  41. TENORMIN [Concomitant]
     Active Substance: ATENOLOL
     Dosage: 25 MG, UNK
     Dates: start: 20140424
  42. MAXI KALZ VIT D3 [Concomitant]
     Dosage: 1 DF, UNK
     Dates: start: 20140215
  43. SIRDALUD [Concomitant]
     Active Substance: TIZANIDINE
     Dosage: 8 MG, UNK
     Dates: start: 20140318, end: 20140320
  44. MOGADON [Concomitant]
     Active Substance: NITRAZEPAM
     Dosage: 1 DF, UNK
     Dates: start: 20140401, end: 20140414
  45. NORVASC [Suspect]
     Active Substance: AMLODIPINE BESYLATE
     Dosage: 5 MG, UNK
     Dates: start: 20140301, end: 20140303
  46. NORVASC [Suspect]
     Active Substance: AMLODIPINE BESYLATE
     Dosage: 7.5 MG, UNK
     Dates: start: 20140317, end: 20140317
  47. NORVASC [Suspect]
     Active Substance: AMLODIPINE BESYLATE
     Dosage: 5 MG, UNK
     Dates: start: 20140424
  48. TEMESTA [Concomitant]
     Active Substance: LORAZEPAM
     Dosage: 2 MG, UNK
     Dates: start: 20140218, end: 20140225
  49. TEMESTA [Concomitant]
     Active Substance: LORAZEPAM
     Dosage: 2.5 MG, UNK
     Dates: start: 20140226, end: 20140309
  50. TEMESTA [Concomitant]
     Active Substance: LORAZEPAM
     Dosage: 1 MG, UNK
     Dates: start: 20140317, end: 20140324
  51. ALNA RETARD [Concomitant]
     Active Substance: TAMSULOSIN HYDROCHLORIDE
     Dosage: 0.8 MG, UNK
     Dates: start: 201401, end: 20140213
  52. TEMESTA [Concomitant]
     Active Substance: LORAZEPAM
     Dosage: 1.75 MG, UNK
     Dates: start: 20140310, end: 20140312
  53. CALCIUM GLYCEROPHOSPHATE\CELLULOSE\POLYETHYLENE GLYCOL\SACCHARIN SODIUM\SODIUM HYDROXIDE\SODIUM LAURYL SULFATE\SODIUM MAGNESIUM SILICATE\SODIUM MONOFLUOROPHOSPHATE\SORBITOL\WATER [Concomitant]
     Active Substance: CALCIUM GLYCEROPHOSPHATE\POLYETHYLENE GLYCOLS\POWDERED CELLULOSE\SACCHARIN SODIUM DIHYDRATE\SODIUM HYDROXIDE\SODIUM LAURYL SULFATE\SODIUM MAGNESIUM SILICATE\SODIUM MONOFLUOROPHOSPHATE\SORBITOL\WATER
     Dosage: 1 DF, UNK
     Dates: start: 201401

REACTIONS (1)
  - Urinary retention [Recovered/Resolved]

NARRATIVE: CASE EVENT DATE: 20140411
